FAERS Safety Report 25530193 (Version 3)
Quarter: 2025Q4

REPORT INFORMATION
  Report Type: Report from Study
  Country: CA (occurrence: CA)
  Receive Date: 20250708
  Receipt Date: 20251121
  Transmission Date: 20260117
  Serious: Yes (Other)
  Sender: TAKEDA
  Company Number: CA-TAKEDA-2020TUS046909

PATIENT
  Age: 4 Year
  Sex: Male
  Weight: 31 kg

DRUGS (42)
  1. VELAGLUCERASE ALFA [Suspect]
     Active Substance: VELAGLUCERASE ALFA
     Indication: Gaucher^s disease
     Dosage: 1000 INTERNATIONAL UNIT, 2/WEEK
     Dates: start: 20190801
  2. VELAGLUCERASE ALFA [Suspect]
     Active Substance: VELAGLUCERASE ALFA
     Dosage: 1400 INTERNATIONAL UNIT, Q2WEEKS
  3. VELAGLUCERASE ALFA [Suspect]
     Active Substance: VELAGLUCERASE ALFA
     Dosage: 1400 INTERNATIONAL UNIT, Q2WEEKS
  4. VELAGLUCERASE ALFA [Suspect]
     Active Substance: VELAGLUCERASE ALFA
     Dosage: UNK UNK, Q2WEEKS
  5. VELAGLUCERASE ALFA [Suspect]
     Active Substance: VELAGLUCERASE ALFA
     Dosage: UNK UNK, Q2WEEKS
  6. VELAGLUCERASE ALFA [Suspect]
     Active Substance: VELAGLUCERASE ALFA
     Dosage: 1000 INTERNATIONAL UNIT, Q2WEEKS
  7. VELAGLUCERASE ALFA [Suspect]
     Active Substance: VELAGLUCERASE ALFA
     Dosage: 1000 INTERNATIONAL UNIT, Q2WEEKS
  8. VELAGLUCERASE ALFA [Suspect]
     Active Substance: VELAGLUCERASE ALFA
     Dosage: 1400 INTERNATIONAL UNIT, Q2WEEKS
  9. VELAGLUCERASE ALFA [Suspect]
     Active Substance: VELAGLUCERASE ALFA
     Dosage: 1400 INTERNATIONAL UNIT, Q2WEEKS
  10. VELAGLUCERASE ALFA [Suspect]
     Active Substance: VELAGLUCERASE ALFA
     Dosage: 1400 INTERNATIONAL UNIT, Q2WEEKS
  11. VELAGLUCERASE ALFA [Suspect]
     Active Substance: VELAGLUCERASE ALFA
     Dosage: 1400 INTERNATIONAL UNIT, Q2WEEKS
  12. VELAGLUCERASE ALFA [Suspect]
     Active Substance: VELAGLUCERASE ALFA
     Dosage: 4 DOSAGE FORM, Q2WEEKS
  13. VELAGLUCERASE ALFA [Suspect]
     Active Substance: VELAGLUCERASE ALFA
     Dosage: 4 DOSAGE FORM, Q2WEEKS
  14. VELAGLUCERASE ALFA [Suspect]
     Active Substance: VELAGLUCERASE ALFA
     Dosage: 4 DOSAGE FORM, Q2WEEKS
  15. VELAGLUCERASE ALFA [Suspect]
     Active Substance: VELAGLUCERASE ALFA
     Dosage: 4 DOSAGE FORM, Q2WEEKS
  16. VELAGLUCERASE ALFA [Suspect]
     Active Substance: VELAGLUCERASE ALFA
     Dosage: 1400 INTERNATIONAL UNIT, Q2WEEKS
  17. VELAGLUCERASE ALFA [Suspect]
     Active Substance: VELAGLUCERASE ALFA
     Dosage: 4 DOSAGE FORM, Q2WEEKS
  18. VELAGLUCERASE ALFA [Suspect]
     Active Substance: VELAGLUCERASE ALFA
     Dosage: 4 INTERNATIONAL UNIT, Q2WEEKS
  19. VELAGLUCERASE ALFA [Suspect]
     Active Substance: VELAGLUCERASE ALFA
     Dosage: 4 DOSAGE FORM, Q2WEEKS
  20. VELAGLUCERASE ALFA [Suspect]
     Active Substance: VELAGLUCERASE ALFA
     Dosage: UNK UNK, Q2WEEKS
  21. VELAGLUCERASE ALFA [Suspect]
     Active Substance: VELAGLUCERASE ALFA
     Dosage: 1600 INTERNATIONAL UNIT, Q2WEEKS
  22. VELAGLUCERASE ALFA [Suspect]
     Active Substance: VELAGLUCERASE ALFA
     Dosage: 1600 INTERNATIONAL UNIT, Q2WEEKS
  23. VELAGLUCERASE ALFA [Suspect]
     Active Substance: VELAGLUCERASE ALFA
     Dosage: 4 DOSAGE FORM, Q2WEEKS
  24. VELAGLUCERASE ALFA [Suspect]
     Active Substance: VELAGLUCERASE ALFA
     Dosage: 4 DOSAGE FORM, Q2WEEKS
  25. VELAGLUCERASE ALFA [Suspect]
     Active Substance: VELAGLUCERASE ALFA
     Dosage: 4 DOSAGE FORM, Q2WEEKS
  26. VELAGLUCERASE ALFA [Suspect]
     Active Substance: VELAGLUCERASE ALFA
     Dosage: 5 DOSAGE FORM, Q2WEEKS
  27. VELAGLUCERASE ALFA [Suspect]
     Active Substance: VELAGLUCERASE ALFA
     Dosage: 5 DOSAGE FORM, Q2WEEKS
  28. VELAGLUCERASE ALFA [Suspect]
     Active Substance: VELAGLUCERASE ALFA
     Dosage: UNK UNK, Q2WEEKS
  29. VELAGLUCERASE ALFA [Suspect]
     Active Substance: VELAGLUCERASE ALFA
     Dosage: 5 DOSAGE FORM, Q2WEEKS
  30. VELAGLUCERASE ALFA [Suspect]
     Active Substance: VELAGLUCERASE ALFA
     Dosage: 2000 INTERNATIONAL UNIT, Q2WEEKS
  31. VELAGLUCERASE ALFA [Suspect]
     Active Substance: VELAGLUCERASE ALFA
     Dosage: UNK UNK, Q2WEEKS
  32. VELAGLUCERASE ALFA [Suspect]
     Active Substance: VELAGLUCERASE ALFA
     Dosage: 2000 INTERNATIONAL UNIT, Q2WEEKS
  33. VELAGLUCERASE ALFA [Suspect]
     Active Substance: VELAGLUCERASE ALFA
     Dosage: 2000 INTERNATIONAL UNIT, Q2WEEKS
  34. VELAGLUCERASE ALFA [Suspect]
     Active Substance: VELAGLUCERASE ALFA
     Dosage: 2000 INTERNATIONAL UNIT, Q2WEEKS
     Dates: start: 20190801
  35. VELAGLUCERASE ALFA [Suspect]
     Active Substance: VELAGLUCERASE ALFA
     Dosage: 2000 INTERNATIONAL UNIT, Q2WEEKS
  36. VELAGLUCERASE ALFA [Suspect]
     Active Substance: VELAGLUCERASE ALFA
     Dosage: 2000 INTERNATIONAL UNIT, Q2WEEKS
  37. VELAGLUCERASE ALFA [Suspect]
     Active Substance: VELAGLUCERASE ALFA
     Dosage: 2400 INTERNATIONAL UNIT
  38. VELAGLUCERASE ALFA [Suspect]
     Active Substance: VELAGLUCERASE ALFA
     Dosage: 2400 INTERNATIONAL UNIT, Q2WEEKS
  39. VELAGLUCERASE ALFA [Suspect]
     Active Substance: VELAGLUCERASE ALFA
     Dosage: 2400 INTERNATIONAL UNIT, Q2WEEKS
  40. VELAGLUCERASE ALFA [Suspect]
     Active Substance: VELAGLUCERASE ALFA
     Dosage: 2400 INTERNATIONAL UNIT, Q2WEEKS
  41. VELAGLUCERASE ALFA [Suspect]
     Active Substance: VELAGLUCERASE ALFA
     Dosage: UNK
  42. VELAGLUCERASE ALFA [Suspect]
     Active Substance: VELAGLUCERASE ALFA
     Dosage: 2400 INTERNATIONAL UNIT, Q2WEEKS

REACTIONS (29)
  - Meningitis viral [Recovered/Resolved]
  - Chest pain [Unknown]
  - Respiratory rate decreased [Not Recovered/Not Resolved]
  - Rhinorrhoea [Recovering/Resolving]
  - Weight increased [Unknown]
  - Sneezing [Not Recovered/Not Resolved]
  - Blood pressure increased [Recovered/Resolved]
  - Cough [Not Recovered/Not Resolved]
  - Vertigo [Not Recovered/Not Resolved]
  - Infusion site haemorrhage [Recovered/Resolved]
  - Infusion related reaction [Unknown]
  - Blood pressure decreased [Recovered/Resolved]
  - Poor venous access [Not Recovered/Not Resolved]
  - Weight fluctuation [Not Recovered/Not Resolved]
  - Pain in extremity [Not Recovered/Not Resolved]
  - Heart rate increased [Unknown]
  - Device use issue [Not Recovered/Not Resolved]
  - Catheter site pain [Unknown]
  - Product dose omission issue [Recovered/Resolved]
  - Inappropriate schedule of product administration [Unknown]
  - Infusion site pain [Recovered/Resolved]
  - Somnolence [Unknown]
  - Pyrexia [Not Recovered/Not Resolved]
  - Flushing [Unknown]
  - Fatigue [Unknown]
  - Bone pain [Not Recovered/Not Resolved]
  - Abdominal pain [Not Recovered/Not Resolved]
  - Nausea [Not Recovered/Not Resolved]
  - Body temperature abnormal [Unknown]

NARRATIVE: CASE EVENT DATE: 20201216
